FAERS Safety Report 26069637 (Version 1)
Quarter: 2025Q4

REPORT INFORMATION
  Report Type: Report from Study
  Country: CN (occurrence: CN)
  Receive Date: 20251120
  Receipt Date: 20251120
  Transmission Date: 20260117
  Serious: Yes (Other)
  Sender: ROCHE
  Company Number: CN-ROCHE-10000437060

PATIENT

DRUGS (22)
  1. TRASTUZUMAB [Suspect]
     Active Substance: TRASTUZUMAB
     Indication: Human epidermal growth factor receptor positive
     Route: 065
  2. TRASTUZUMAB [Suspect]
     Active Substance: TRASTUZUMAB
     Indication: Breast cancer metastatic
  3. ADO-TRASTUZUMAB EMTANSINE [Suspect]
     Active Substance: ADO-TRASTUZUMAB EMTANSINE
     Indication: Human epidermal growth factor receptor positive
     Route: 065
  4. ADO-TRASTUZUMAB EMTANSINE [Suspect]
     Active Substance: ADO-TRASTUZUMAB EMTANSINE
     Indication: Breast cancer metastatic
  5. PYROTINIB [Suspect]
     Active Substance: PYROTINIB
     Indication: Human epidermal growth factor receptor positive
     Route: 065
  6. PYROTINIB [Suspect]
     Active Substance: PYROTINIB
     Indication: Breast cancer metastatic
  7. INVESTIGATIONAL PRODUCT [Suspect]
     Active Substance: INVESTIGATIONAL PRODUCT
     Indication: Human epidermal growth factor receptor positive
     Route: 065
  8. INVESTIGATIONAL PRODUCT [Suspect]
     Active Substance: INVESTIGATIONAL PRODUCT
     Indication: Breast cancer metastatic
  9. GEMCITABINE [Suspect]
     Active Substance: GEMCITABINE
     Indication: Human epidermal growth factor receptor positive
     Route: 065
  10. GEMCITABINE [Suspect]
     Active Substance: GEMCITABINE
     Indication: Breast cancer metastatic
  11. VINORELBINE [Suspect]
     Active Substance: VINORELBINE TARTRATE
     Indication: Human epidermal growth factor receptor positive
     Route: 065
  12. VINORELBINE [Suspect]
     Active Substance: VINORELBINE TARTRATE
     Indication: Breast cancer metastatic
  13. TRASTUZUMAB DERUXTECAN [Suspect]
     Active Substance: TRASTUZUMAB DERUXTECAN
     Indication: Human epidermal growth factor receptor positive
     Route: 065
  14. TRASTUZUMAB DERUXTECAN [Suspect]
     Active Substance: TRASTUZUMAB DERUXTECAN
     Indication: Breast cancer metastatic
  15. PACLITAXEL [Suspect]
     Active Substance: PACLITAXEL
     Indication: Human epidermal growth factor receptor positive
     Route: 065
  16. PACLITAXEL [Suspect]
     Active Substance: PACLITAXEL
     Indication: Breast cancer metastatic
  17. DOCETAXEL [Suspect]
     Active Substance: DOCETAXEL
     Indication: Human epidermal growth factor receptor positive
     Route: 065
  18. DOCETAXEL [Suspect]
     Active Substance: DOCETAXEL
     Indication: Breast cancer metastatic
  19. PACLITAXEL [Suspect]
     Active Substance: PACLITAXEL
     Indication: Human epidermal growth factor receptor positive
     Route: 065
  20. PACLITAXEL [Suspect]
     Active Substance: PACLITAXEL
     Indication: Breast cancer metastatic
  21. PACLITAXEL [Suspect]
     Active Substance: PACLITAXEL
     Indication: Human epidermal growth factor receptor positive
     Route: 065
  22. PACLITAXEL [Suspect]
     Active Substance: PACLITAXEL
     Indication: Breast cancer metastatic

REACTIONS (9)
  - Diarrhoea [Unknown]
  - Leukopenia [Unknown]
  - Neutropenia [Unknown]
  - Anaemia [Unknown]
  - Thrombocytopenia [Unknown]
  - Alanine aminotransferase increased [Unknown]
  - Aspartate aminotransferase increased [Unknown]
  - Nausea [Unknown]
  - Palmar-plantar erythrodysaesthesia syndrome [Unknown]
